FAERS Safety Report 24466154 (Version 1)
Quarter: 2024Q4

REPORT INFORMATION
  Report Type: Report from Study
  Country: US (occurrence: US)
  Receive Date: 20241018
  Receipt Date: 20241018
  Transmission Date: 20250114
  Serious: No
  Sender: ROCHE
  Company Number: US-ROCHE-3527616

PATIENT
  Age: 67 Year
  Sex: Male
  Weight: 113.4 kg

DRUGS (5)
  1. XOLAIR [Suspect]
     Active Substance: OMALIZUMAB
     Indication: Chronic spontaneous urticaria
     Dosage: INJECT 300MG SUBCUTANEOUSLY
     Route: 058
  2. XOLAIR [Suspect]
     Active Substance: OMALIZUMAB
     Indication: Idiopathic urticaria
  3. XOLAIR [Suspect]
     Active Substance: OMALIZUMAB
     Indication: Urticaria
  4. JANUMET [Concomitant]
     Active Substance: METFORMIN HYDROCHLORIDE\SITAGLIPTIN PHOSPHATE
     Indication: Diabetes mellitus
     Dosage: 50/1000 MG PER DOSE (ONE TAB)
     Route: 048
  5. LANTUS [Concomitant]
     Active Substance: INSULIN GLARGINE
     Indication: Diabetes mellitus

REACTIONS (9)
  - Product complaint [Unknown]
  - Accidental exposure to product [Unknown]
  - No adverse event [Unknown]
  - Off label use [Unknown]
  - Device issue [Unknown]
  - Device defective [Unknown]
  - Product quality issue [Unknown]
  - Syringe issue [Unknown]
  - Drug delivery system malfunction [Unknown]

NARRATIVE: CASE EVENT DATE: 20240314
